FAERS Safety Report 11928271 (Version 3)
Quarter: 2016Q1

REPORT INFORMATION
  Report Type: Spontaneous
  Country: US (occurrence: US)
  Receive Date: 20160119
  Receipt Date: 20160316
  Transmission Date: 20160526
  Serious: Yes (Other)
  Sender: FDA-Public Use
  Company Number: US-BAYER-2016-009070

PATIENT
  Age: 38 Year
  Sex: Female
  Weight: 52.15 kg

DRUGS (4)
  1. FERROUS GLUCONATE [Concomitant]
     Active Substance: FERROUS GLUCONATE
     Dosage: UNK UNK, QD
  2. MIRENA [Suspect]
     Active Substance: LEVONORGESTREL
     Indication: MENORRHAGIA
     Dosage: 20 MCG/24HR, CONT
     Route: 015
     Dates: start: 20151130, end: 20151217
  3. TRANEXAMIC ACID. [Concomitant]
     Active Substance: TRANEXAMIC ACID
  4. MIRENA [Suspect]
     Active Substance: LEVONORGESTREL
     Indication: CONTRACEPTION
     Dosage: 20 MCG/24HR, CONT
     Route: 015
     Dates: start: 20151030, end: 20151123

REACTIONS (14)
  - Pelvic pain [None]
  - Device expulsion [None]
  - Menorrhagia [None]
  - Dizziness [None]
  - Vaginal haemorrhage [None]
  - Genital haemorrhage [None]
  - Polymenorrhoea [None]
  - Off label use of device [None]
  - Syncope [None]
  - Genital haemorrhage [None]
  - Device expulsion [None]
  - Uterine haemorrhage [None]
  - Device issue [None]
  - Anaemia [None]

NARRATIVE: CASE EVENT DATE: 20151123
